FAERS Safety Report 13331206 (Version 1)
Quarter: 2017Q1

REPORT INFORMATION
  Report Type: Spontaneous
  Country: US (occurrence: US)
  Receive Date: 20170313
  Receipt Date: 20170313
  Transmission Date: 20170428
  Serious: Yes (Hospitalization)
  Sender: FDA-Public Use
  Company Number: None

PATIENT
  Age: 67 Year
  Sex: Female

DRUGS (15)
  1. SUDAFED [Concomitant]
     Active Substance: PSEUDOEPHEDRINE HYDROCHLORIDE
  2. NUCALA [Suspect]
     Active Substance: MEPOLIZUMAB
     Indication: ASTHMA
     Dosage: 100MG Q 4 WEEKS SC
     Route: 058
     Dates: start: 20160525
  3. VITAMIN D [Concomitant]
     Active Substance: CHOLECALCIFEROL
  4. MORPHINE [Concomitant]
     Active Substance: MORPHINE
  5. NOVOLOG [Concomitant]
     Active Substance: INSULIN ASPART
  6. CLACIUM [Concomitant]
  7. LYRICA [Concomitant]
     Active Substance: PREGABALIN
  8. PREDNISONE. [Concomitant]
     Active Substance: PREDNISONE
  9. VENTOLIN [Concomitant]
     Active Substance: ALBUTEROL SULFATE
  10. MOMETASONE [Concomitant]
     Active Substance: MOMETASONE
  11. BENADRYL [Concomitant]
     Active Substance: DIPHENHYDRAMINE HYDROCHLORIDE
  12. POTASSIUM [Concomitant]
     Active Substance: POTASSIUM
  13. LANTUS [Concomitant]
     Active Substance: INSULIN GLARGINE
  14. AZELASTINE [Concomitant]
     Active Substance: AZELASTINE
  15. SYMBICORT [Concomitant]
     Active Substance: BUDESONIDE\FORMOTEROL FUMARATE DIHYDRATE

REACTIONS (4)
  - Pain [None]
  - Necrosis [None]
  - Arthropathy [None]
  - Hypertension [None]

NARRATIVE: CASE EVENT DATE: 201702
